FAERS Safety Report 8182122-5 (Version None)
Quarter: 2012Q1

REPORT INFORMATION
  Report Type: 
  Country: None (occurrence: None)
  Receive Date: 20120302
  Receipt Date: 20120221
  Transmission Date: 20120608
  Serious: Yes (Other)
  Sender: FDA-Public Use
  Company Number: US-ALLERGAN-1201858US

PATIENT
  Age: 11 Year
  Sex: Female
  Weight: 42.177 kg

DRUGS (3)
  1. LUMIGAN [Suspect]
     Indication: GLAUCOMA
  2. COSOPT [Suspect]
     Indication: INTRAOCULAR PRESSURE INCREASED
     Dosage: 1 GTT, BID
     Route: 047
  3. LUMIGAN [Suspect]
     Indication: INTRAOCULAR PRESSURE INCREASED
     Dosage: 1 GTT, QPM
     Route: 047

REACTIONS (6)
  - SYNCOPE [None]
  - LOSS OF CONSCIOUSNESS [None]
  - HYPOTENSION [None]
  - DIZZINESS [None]
  - SKIN HYPERPIGMENTATION [None]
  - GROWTH OF EYELASHES [None]
